FAERS Safety Report 17844677 (Version 1)
Quarter: 2020Q2

REPORT INFORMATION
  Report Type: Spontaneous
  Country: IN (occurrence: IN)
  Receive Date: 20200601
  Receipt Date: 20200601
  Transmission Date: 20200714
  Serious: Yes (Other)
  Sender: FDA-Public Use
  Company Number: IN-PIRAMAL ENTERPRISES LIMITED-2020-PEL-000228

PATIENT

DRUGS (3)
  1. KETAMINE [Suspect]
     Active Substance: KETAMINE
     Dosage: 10 MG INCREMENTAL BOLUSES TO MAXIMUM OF 50 MG
     Route: 042
  2. SEVOFLURANE. [Suspect]
     Active Substance: SEVOFLURANE
     Indication: MAINTENANCE OF ANAESTHESIA
     Dosage: MAC 1.5?1.7
  3. KETAMINE [Suspect]
     Active Substance: KETAMINE
     Indication: ANAESTHESIA
     Dosage: 10 MILLIGRAM
     Route: 042

REACTIONS (1)
  - Pneumothorax [Recovered/Resolved]
